FAERS Safety Report 13863569 (Version 7)
Quarter: 2020Q3

REPORT INFORMATION
  Report Type: Spontaneous
  Country: US (occurrence: US)
  Receive Date: 20170814
  Receipt Date: 20200915
  Transmission Date: 20201102
  Serious: Yes (Other)
  Sender: FDA-Public Use
  Company Number: US-PFIZER INC-2017351029

PATIENT
  Age: 69 Year
  Sex: Male
  Weight: 83 kg

DRUGS (39)
  1. LYRICA [Suspect]
     Active Substance: PREGABALIN
     Indication: UMBILICAL HERNIA
  2. LYRICA [Suspect]
     Active Substance: PREGABALIN
     Indication: THROMBOCYTOPENIA
  3. LYRICA [Suspect]
     Active Substance: PREGABALIN
     Indication: FATIGUE
  4. DESIPRAMINE [Concomitant]
     Active Substance: DESIPRAMINE
     Dosage: 25 MG, UNK
  5. TYLENOL WITH CODEINE [Concomitant]
     Active Substance: ACETAMINOPHEN\CODEINE PHOSPHATE
     Dosage: 1 DF, AS NEEDED
     Route: 048
     Dates: end: 20181128
  6. LYRICA [Suspect]
     Active Substance: PREGABALIN
     Indication: CONSTIPATION
  7. LYRICA [Suspect]
     Active Substance: PREGABALIN
     Indication: PANCREATITIS CHRONIC
  8. LYRICA [Suspect]
     Active Substance: PREGABALIN
     Indication: RENAL CYST
  9. LYRICA [Suspect]
     Active Substance: PREGABALIN
     Indication: HYPOTHYROIDISM
  10. LYRICA [Suspect]
     Active Substance: PREGABALIN
     Indication: AUTOIMMUNE THYROIDITIS
  11. BENTYL [Concomitant]
     Active Substance: DICYCLOMINE HYDROCHLORIDE
     Dosage: 20 MG, 3X/DAY
     Route: 048
  12. EMERGEN?C [Concomitant]
     Active Substance: VITAMINS
     Dosage: UNK
     Route: 048
  13. GAS?X [Concomitant]
     Active Substance: DIMETHICONE
     Dosage: UNK
     Route: 048
  14. ZANTAC [Concomitant]
     Active Substance: RANITIDINE HYDROCHLORIDE
     Dosage: 150 MG, 2X/DAY
     Route: 048
  15. LYRICA [Suspect]
     Active Substance: PREGABALIN
     Indication: GASTROOESOPHAGEAL REFLUX DISEASE
  16. LYRICA [Suspect]
     Active Substance: PREGABALIN
     Indication: LYMPHOPENIA
  17. LYRICA [Suspect]
     Active Substance: PREGABALIN
     Indication: HYPOCALCAEMIA
  18. LYRICA [Suspect]
     Active Substance: PREGABALIN
     Indication: PAIN
  19. TYLENOL WITH CODEINE [Concomitant]
     Active Substance: ACETAMINOPHEN\CODEINE PHOSPHATE
     Dosage: 1 DF, AS NEEDED (EVERY 4 HOURS, AS NEEDED)
     Route: 048
  20. LYRICA [Suspect]
     Active Substance: PREGABALIN
     Indication: OESOPHAGITIS
  21. LYRICA [Suspect]
     Active Substance: PREGABALIN
     Indication: DIZZINESS
  22. DESIPRAMINE [Concomitant]
     Active Substance: DESIPRAMINE
     Dosage: 100 MG, 1X/DAY (AT NIGHT)
  23. SYNTHROID [Concomitant]
     Active Substance: LEVOTHYROXINE SODIUM
     Dosage: 50 UG, 1X/DAY
     Route: 048
  24. LYRICA [Suspect]
     Active Substance: PREGABALIN
     Indication: CHRONIC FATIGUE SYNDROME
     Dosage: 600 MG, DAILY
     Dates: start: 2015
  25. LYRICA [Suspect]
     Active Substance: PREGABALIN
     Indication: CONSTIPATION
     Dosage: 200 MG, 3X/DAY
     Route: 048
  26. LEVBID [Concomitant]
     Active Substance: HYOSCYAMINE SULFATE
     Indication: MUSCLE SPASMS
     Dosage: 0.375 MG, AS NEEDED (EVERY 12 HOURS, AS NEEDED)
     Route: 048
  27. MIRALAX [Concomitant]
     Active Substance: POLYETHYLENE GLYCOL 3350
     Dosage: 17 G, DAILY
     Route: 048
  28. LYRICA [Suspect]
     Active Substance: PREGABALIN
     Indication: PROSTATITIS
  29. LYRICA [Suspect]
     Active Substance: PREGABALIN
     Indication: INTELLECTUAL DISABILITY
  30. TUMS EX [Concomitant]
     Active Substance: CALCIUM CARBONATE
     Dosage: UNK
     Route: 048
  31. NORPRAMIN [DESIPRAMINE HYDROCHLORIDE] [Concomitant]
     Dosage: 100 MG, 1X/DAY (NIGHTLY)
     Route: 048
  32. CYMBALTA [Concomitant]
     Active Substance: DULOXETINE HYDROCHLORIDE
     Dosage: 30 MG, DAILY
     Route: 048
  33. LYRICA [Suspect]
     Active Substance: PREGABALIN
     Indication: FIBROMYALGIA
     Dosage: 50 MG, 3X/DAY
     Route: 048
     Dates: start: 20150504, end: 2015
  34. LYRICA [Suspect]
     Active Substance: PREGABALIN
     Indication: IRRITABLE BOWEL SYNDROME
     Dosage: 400 MG, DAILY
     Dates: start: 20170705
  35. LYRICA [Suspect]
     Active Substance: PREGABALIN
     Indication: DIARRHOEA
  36. LYRICA [Suspect]
     Active Substance: PREGABALIN
     Indication: FOOT DEFORMITY
  37. LYRICA [Suspect]
     Active Substance: PREGABALIN
     Indication: DYSARTHRIA
  38. CITRUCEL [Concomitant]
     Active Substance: METHYLCELLULOSE (4000 MPA.S)
     Dosage: UNK
     Route: 048
  39. PSYLLIUM HUSK [PLANTAGO OVATA HUSK] [Concomitant]
     Active Substance: HERBALS\PLANTAGO OVATA SEED COAT
     Dosage: UNK
     Route: 048

REACTIONS (17)
  - Off label use [Not Recovered/Not Resolved]
  - Supraventricular extrasystoles [Not Recovered/Not Resolved]
  - Oral candidiasis [Not Recovered/Not Resolved]
  - Sleep apnoea syndrome [Not Recovered/Not Resolved]
  - Disease recurrence [Not Recovered/Not Resolved]
  - Drug ineffective for unapproved indication [Not Recovered/Not Resolved]
  - Intentional product use issue [Unknown]
  - Prescribed overdose [Unknown]
  - Condition aggravated [Recovered/Resolved]
  - Prostatic mass [Not Recovered/Not Resolved]
  - Amnesia [Not Recovered/Not Resolved]
  - Depression [Not Recovered/Not Resolved]
  - Myeloproliferative neoplasm [Not Recovered/Not Resolved]
  - Pharyngitis [Not Recovered/Not Resolved]
  - Fibromyalgia [Recovered/Resolved]
  - Nasopharyngitis [Not Recovered/Not Resolved]
  - Haemangioma of liver [Not Recovered/Not Resolved]

NARRATIVE: CASE EVENT DATE: 2015
